FAERS Safety Report 23385346 (Version 1)
Quarter: 2024Q1

REPORT INFORMATION
  Report Type: Spontaneous
  Country: CA (occurrence: CA)
  Receive Date: 20240110
  Receipt Date: 20240110
  Transmission Date: 20240410
  Serious: Yes (Other)
  Sender: FDA-Public Use
  Company Number: CA-DRL-USA-SPO/CAN/24/0000161

PATIENT
  Age: 60 Year
  Sex: Male

DRUGS (20)
  1. LENALIDOMIDE [Suspect]
     Active Substance: LENALIDOMIDE
     Indication: Diffuse large B-cell lymphoma
  2. RITUXIMAB [Suspect]
     Active Substance: RITUXIMAB
     Indication: Diffuse large B-cell lymphoma
  3. RITUXIMAB [Suspect]
     Active Substance: RITUXIMAB
  4. RITUXIMAB [Suspect]
     Active Substance: RITUXIMAB
  5. RITUXIMAB [Suspect]
     Active Substance: RITUXIMAB
  6. BENDAMUSTINE HYDROCHLORIDE [Suspect]
     Active Substance: BENDAMUSTINE HYDROCHLORIDE
     Indication: Diffuse large B-cell lymphoma
  7. CISPLATIN [Suspect]
     Active Substance: CISPLATIN
     Indication: Diffuse large B-cell lymphoma
  8. CYCLOPHOSPHAMIDE [Suspect]
     Active Substance: CYCLOPHOSPHAMIDE
     Indication: Diffuse large B-cell lymphoma
  9. DEXAMETHASONE [Suspect]
     Active Substance: DEXAMETHASONE
     Indication: Diffuse large B-cell lymphoma
  10. DOXORUBICIN HYDROCHLORIDE [Suspect]
     Active Substance: DOXORUBICIN HYDROCHLORIDE
     Indication: Diffuse large B-cell lymphoma
  11. GEMCITABINE [Suspect]
     Active Substance: GEMCITABINE
     Indication: Diffuse large B-cell lymphoma
  12. POLATUZUMAB VEDOTIN [Suspect]
     Active Substance: POLATUZUMAB VEDOTIN
     Indication: Diffuse large B-cell lymphoma
  13. PREDNISONE [Suspect]
     Active Substance: PREDNISONE
     Indication: Diffuse large B-cell lymphoma
  14. PREDNISONE [Suspect]
     Active Substance: PREDNISONE
  15. PREDNISONE [Suspect]
     Active Substance: PREDNISONE
  16. PREDNISONE [Suspect]
     Active Substance: PREDNISONE
  17. PREDNISONE [Suspect]
     Active Substance: PREDNISONE
  18. PREDNISONE [Suspect]
     Active Substance: PREDNISONE
  19. PREDNISONE [Suspect]
     Active Substance: PREDNISONE
  20. VINCRISTINE [Suspect]
     Active Substance: VINCRISTINE

REACTIONS (4)
  - Blood lactate dehydrogenase increased [Unknown]
  - COVID-19 [Unknown]
  - Disease progression [Unknown]
  - Product use in unapproved indication [Unknown]
